FAERS Safety Report 11148355 (Version 2)
Quarter: 2015Q2

REPORT INFORMATION
  Report Type: Spontaneous
  Country: FR (occurrence: None)
  Receive Date: 20150527
  Receipt Date: 20150617
  Transmission Date: 20150821
  Serious: Yes (Death, Other)
  Sender: FDA-Public Use
  Company Number: 2015FR0258

PATIENT
  Age: 7 Year
  Sex: Male

DRUGS (1)
  1. NITISINONE (NITISINONE) [Suspect]
     Active Substance: NITISINONE
     Indication: TYROSINAEMIA
     Route: 048
     Dates: end: 20141121

REACTIONS (3)
  - Haemorrhage [None]
  - Liver transplant [None]
  - Cardiac arrest [None]

NARRATIVE: CASE EVENT DATE: 20141122
